FAERS Safety Report 7154470-9 (Version None)
Quarter: 2010Q4

REPORT INFORMATION
  Report Type: 
  Country: None (occurrence: None)
  Receive Date: 20101213
  Receipt Date: 20101206
  Transmission Date: 20110411
  Serious: Yes (Life-Threatening)
  Sender: FDA-Public Use
  Company Number: CO-BAXTER-2010BH029831

PATIENT
  Age: 71 Year
  Sex: Female
  Weight: 68 kg

DRUGS (10)
  1. DIANEAL [Suspect]
     Indication: RENAL FAILURE CHRONIC
     Route: 033
  2. EXTRANEAL [Suspect]
     Indication: RENAL FAILURE CHRONIC
     Route: 033
  3. NUTRINEAL [Suspect]
     Indication: RENAL FAILURE CHRONIC
     Route: 033
  4. EPOGEN [Concomitant]
     Indication: BONE MARROW FAILURE
     Route: 058
     Dates: start: 20090216
  5. VITAMIN B COMPLEX CAP [Concomitant]
     Indication: VITAMIN SUPPLEMENTATION
     Route: 048
     Dates: start: 20090216
  6. FOLIC ACID [Concomitant]
     Indication: VITAMIN SUPPLEMENTATION
     Route: 048
     Dates: start: 20090216
  7. EPOGEN [Concomitant]
     Route: 058
     Dates: start: 20100612
  8. INSULIN [Concomitant]
     Indication: METABOLIC DISORDER
     Route: 058
     Dates: start: 20100216, end: 20101204
  9. LOSARTAN [Concomitant]
     Indication: HYPERTENSION
     Route: 048
     Dates: start: 20090709
  10. METOPROLOL [Concomitant]
     Indication: HYPERTENSION
     Route: 048
     Dates: start: 20100216

REACTIONS (1)
  - HYPOGLYCAEMIA [None]
